FAERS Safety Report 10708318 (Version 2)
Quarter: 2015Q1

REPORT INFORMATION
  Report Type: Spontaneous
  Country: DE (occurrence: DE)
  Receive Date: 20150113
  Receipt Date: 20150113
  Transmission Date: 20150721
  Serious: Yes (Death, Disabling)
  Sender: FDA-Public Use
  Company Number: DE-ABBVIE-14P-062-1321501-00

PATIENT
  Age: 67 Year
  Sex: Female

DRUGS (2)
  1. DUODOPA [Suspect]
     Active Substance: CARBIDOPA\LEVODOPA
     Dosage: MD 7.5ML, CRD 3.4ML/H, ED 2.5ML
     Route: 050
     Dates: start: 20100316
  2. DUODOPA [Suspect]
     Active Substance: CARBIDOPA\LEVODOPA
     Indication: PARKINSON^S DISEASE
     Route: 050
     Dates: start: 20100310, end: 20100316

REACTIONS (2)
  - Epilepsy [Fatal]
  - General physical health deterioration [Not Recovered/Not Resolved]

NARRATIVE: CASE EVENT DATE: 20140930
